FAERS Safety Report 8863654 (Version 1)
Quarter: 2012Q4

REPORT INFORMATION
  Report Type: 
  Country: US (occurrence: US)
  Receive Date: 20121024
  Receipt Date: 20121024
  Transmission Date: 20130627
  Serious: No
  Sender: FDA-Public Use
  Company Number: US-AMGEN-USASP2011063359

PATIENT
  Age: 57 Year
  Sex: Female

DRUGS (2)
  1. ENBREL [Suspect]
     Indication: RHEUMATOID ARTHRITIS
     Dosage: 50 mg, qwk
     Dates: start: 19980101, end: 201107
  2. METHOTREXATE [Concomitant]
     Dosage: 10 mg, qwk

REACTIONS (5)
  - Rheumatoid arthritis [Not Recovered/Not Resolved]
  - Chondropathy [Recovered/Resolved]
  - Tendon disorder [Recovered/Resolved]
  - Vitamin D decreased [Not Recovered/Not Resolved]
  - Injection site pain [Recovered/Resolved]
